FAERS Safety Report 23867386 (Version 1)
Quarter: 2024Q2

REPORT INFORMATION
  Report Type: Spontaneous
  Country: US (occurrence: None)
  Receive Date: 20240516
  Receipt Date: 20240516
  Transmission Date: 20240716
  Serious: Yes (Hospitalization)
  Sender: FDA-Public Use
  Company Number: None

PATIENT
  Age: 70 Year
  Sex: Female

DRUGS (3)
  1. SILDENAFIL [Suspect]
     Active Substance: SILDENAFIL
     Indication: Pulmonary hypertension
     Dosage: 40MG TID?
  2. VITAMIN D [Suspect]
     Active Substance: VITAMIN D NOS
  3. VITAMIN K [Suspect]
     Active Substance: PHYTONADIONE

REACTIONS (3)
  - Epistaxis [None]
  - Hypersomnia [None]
  - Arthralgia [None]
